FAERS Safety Report 11533418 (Version 3)
Quarter: 2015Q4

REPORT INFORMATION
  Report Type: Report from Study
  Country: JP (occurrence: JP)
  Receive Date: 20150921
  Receipt Date: 20151130
  Transmission Date: 20160304
  Serious: Yes (Hospitalization)
  Sender: FDA-Public Use
  Company Number: JP-ABBVIE-15K-087-1464837-00

PATIENT
  Age: 53 Year
  Sex: Female
  Weight: 63.3 kg

DRUGS (5)
  1. SALAZOSULFAPYRIDINE [Concomitant]
     Active Substance: SULFASALAZINE
     Indication: RHEUMATOID ARTHRITIS
     Route: 048
     Dates: start: 20140220
  2. METHOTREXATE [Suspect]
     Active Substance: METHOTREXATE
     Dosage: 5 MG/ 2 WEEKS
     Route: 048
     Dates: start: 20140417, end: 20150903
  3. HUMIRA [Suspect]
     Active Substance: ADALIMUMAB
     Indication: RHEUMATOID ARTHRITIS
     Route: 058
     Dates: start: 20140220, end: 20150625
  4. METHOTREXATE [Suspect]
     Active Substance: METHOTREXATE
     Dosage: 6 MG/ 2 WEEKS
     Route: 048
     Dates: start: 20140320, end: 20140416
  5. METHOTREXATE [Suspect]
     Active Substance: METHOTREXATE
     Indication: RHEUMATOID ARTHRITIS
     Dosage: 4 MG/ 2 WEEKS
     Route: 048
     Dates: start: 20140220, end: 20140319

REACTIONS (10)
  - Breast fibrosis [Unknown]
  - Platelet count decreased [Unknown]
  - B-cell lymphoma recurrent [Unknown]
  - Breast swelling [Recovering/Resolving]
  - Red blood cell count decreased [Unknown]
  - Diffuse large B-cell lymphoma [Recovering/Resolving]
  - Breast pain [Unknown]
  - Infection [Unknown]
  - Epstein-Barr virus associated lymphoma [Unknown]
  - Back pain [Unknown]

NARRATIVE: CASE EVENT DATE: 2015
